FAERS Safety Report 12542916 (Version 1)
Quarter: 2016Q3

REPORT INFORMATION
  Report Type: Spontaneous
  Country: GB (occurrence: GB)
  Receive Date: 20160710
  Receipt Date: 20160710
  Transmission Date: 20161109
  Serious: Yes (Other)
  Sender: FDA-Public Use
  Company Number: GB-TEVA-672861ACC

PATIENT
  Age: 72 Year
  Sex: Female
  Weight: 80 kg

DRUGS (11)
  1. CALCIUM CARBONATE. [Concomitant]
     Active Substance: CALCIUM CARBONATE
     Dosage: 2 DOSAGE FORMS DAILY;
     Dates: start: 20150724
  2. ATORVASTATIN [Suspect]
     Active Substance: ATORVASTATIN
     Dates: start: 20141003
  3. BENDROFLUMETHIAZIDE [Concomitant]
     Active Substance: BENDROFLUMETHIAZIDE
     Dosage: 1 DOSAGE FORMS DAILY; IN THE MORNING.1 DF DAILY
     Dates: start: 20141003
  4. IBUPROFEN. [Concomitant]
     Active Substance: IBUPROFEN
     Dosage: APPLY 3-4 TIMES A DAY
     Route: 061
     Dates: start: 20160603, end: 20160604
  5. AMITRIPTYLINE HYDROCHLORIDE. [Concomitant]
     Active Substance: AMITRIPTYLINE HYDROCHLORIDE
     Dosage: 2 DOSAGE FORMS DAILY; AT  NIGHT 2DF DAILY
     Dates: start: 20141003
  6. LISINOPRIL. [Concomitant]
     Active Substance: LISINOPRIL
     Dosage: 1 DOSAGE FORMS DAILY;
     Dates: start: 20141003
  7. PIROXICAM. [Concomitant]
     Active Substance: PIROXICAM
     Dosage: APPLY AS DIRECTED
     Route: 061
     Dates: start: 20160506, end: 20160603
  8. SEREVENT DISKUS [Concomitant]
     Active Substance: SALMETEROL XINAFOATE
     Dosage: 4 DOSAGE FORMS DAILY;
     Route: 055
     Dates: start: 20141003
  9. AMOXICILLIN. [Concomitant]
     Active Substance: AMOXICILLIN
     Dosage: 3 DOSAGE FORMS DAILY;
     Dates: start: 20160322, end: 20160327
  10. ASPIRIN. [Concomitant]
     Active Substance: ASPIRIN
     Dosage: 1 DOSAGE FORMS DAILY; EACH MORNING, 1 DF DAILY
     Dates: start: 20160506
  11. VENTOLIN [Concomitant]
     Active Substance: ALBUTEROL SULFATE
     Dosage: 8 DOSAGE FORMS DAILY; AS REQUIRED. 8 DF DAILY
     Route: 055
     Dates: start: 20141003

REACTIONS (4)
  - Blood creatine phosphokinase increased [Unknown]
  - Muscular weakness [Recovering/Resolving]
  - Muscle atrophy [Recovering/Resolving]
  - Myalgia [Recovering/Resolving]

NARRATIVE: CASE EVENT DATE: 20160617
